FAERS Safety Report 8410558-3 (Version None)
Quarter: 2012Q2

REPORT INFORMATION
  Report Type: 
  Country: None (occurrence: None)
  Receive Date: 20120605
  Receipt Date: 20120524
  Transmission Date: 20120825
  Serious: Yes (Other)
  Sender: FDA-Public Use
  Company Number: JP-BRISTOL-MYERS SQUIBB COMPANY-16621526

PATIENT
  Age: 63 Year
  Sex: Female

DRUGS (2)
  1. TAXOL [Suspect]
     Indication: BREAST CANCER
     Route: 041
     Dates: start: 20120517
  2. PARAPLATIN AQ [Suspect]
     Indication: BREAST CANCER
     Route: 041
     Dates: start: 20120517

REACTIONS (4)
  - MYALGIA [None]
  - ABASIA [None]
  - NEUROPATHY PERIPHERAL [None]
  - ARTHRALGIA [None]
